FAERS Safety Report 10023056 (Version 3)
Quarter: 2014Q2

REPORT INFORMATION
  Report Type: Spontaneous
  Country: DE (occurrence: DE)
  Receive Date: 20140319
  Receipt Date: 20140602
  Transmission Date: 20141212
  Serious: Yes (Other)
  Sender: FDA-Public Use
  Company Number: PHHY2014DE031936

PATIENT
  Age: 47 Year
  Sex: Male
  Weight: 82 kg

DRUGS (2)
  1. GLIVEC [Suspect]
     Indication: CHRONIC MYELOID LEUKAEMIA
     Dosage: 400 MG, DAILY
     Dates: start: 20020615, end: 20080720
  2. IBUPROFEN [Concomitant]
     Dosage: UNK UKN, UNK
     Dates: start: 20081106

REACTIONS (2)
  - Intervertebral disc protrusion [Recovered/Resolved]
  - Drug resistance [Recovered/Resolved]
